FAERS Safety Report 22393420 (Version 1)
Quarter: 2023Q2

REPORT INFORMATION
  Report Type: Spontaneous
  Country: US (occurrence: None)
  Receive Date: 20230531
  Receipt Date: 20230531
  Transmission Date: 20230722
  Serious: Yes (Life-Threatening, Hospitalization)
  Sender: FDA-Public Use
  Company Number: None

PATIENT
  Age: 9 Year
  Sex: Male
  Weight: 27 kg

DRUGS (5)
  1. CLONIDINE HYDROCHLORIDE [Suspect]
     Active Substance: CLONIDINE HYDROCHLORIDE
     Indication: Anxiety
     Dosage: ORAL
     Route: 048
     Dates: start: 20230521, end: 20230522
  2. CLONIDINE HYDROCHLORIDE [Suspect]
     Active Substance: CLONIDINE HYDROCHLORIDE
     Indication: Attention deficit hyperactivity disorder
  3. FLUOXETINE [Concomitant]
     Active Substance: FLUOXETINE HYDROCHLORIDE
  4. ARIPIPRAZOLE [Concomitant]
     Active Substance: ARIPIPRAZOLE
  5. MELATONIN [Concomitant]
     Active Substance: MELATONIN

REACTIONS (4)
  - Dizziness [None]
  - Heart rate decreased [None]
  - Jaundice [None]
  - Loss of consciousness [None]

NARRATIVE: CASE EVENT DATE: 20230522
